FAERS Safety Report 12866047 (Version 1)
Quarter: 2016Q4

REPORT INFORMATION
  Report Type: Spontaneous
  Country: US (occurrence: US)
  Receive Date: 20161020
  Receipt Date: 20161020
  Transmission Date: 20170207
  Serious: No
  Sender: FDA-Public Use
  Company Number: US-GLAXOSMITHKLINE-US2016151430

PATIENT
  Age: 71 Year
  Sex: Female

DRUGS (1)
  1. NICODERM CQ [Suspect]
     Active Substance: NICOTINE
     Indication: SMOKING CESSATION THERAPY
     Dosage: 14 MG, UNK
     Dates: start: 201609, end: 20161002

REACTIONS (5)
  - Application site dryness [Recovered/Resolved]
  - Application site exfoliation [Recovered/Resolved]
  - Application site discharge [Unknown]
  - Application site erythema [Not Recovered/Not Resolved]
  - Application site vesicles [Recovered/Resolved]
